FAERS Safety Report 7426163-1 (Version None)
Quarter: 2011Q2

REPORT INFORMATION
  Report Type: 
  Country: None (occurrence: None)
  Receive Date: 20110420
  Receipt Date: 20110415
  Transmission Date: 20111010
  Serious: Yes (Death, Hospitalization)
  Sender: FDA-Public Use
  Company Number: PHHY2009MX40278

PATIENT
  Sex: Male

DRUGS (5)
  1. LEVODOPA [Concomitant]
     Indication: PARKINSON'S DISEASE
     Dosage: 2 TABLETS PER DAY
     Route: 048
  2. SIFROL [Concomitant]
     Indication: TREMOR
     Dosage: 1 TABLET DAILY
     Route: 048
  3. STALEVO 100 [Suspect]
     Indication: PARKINSON'S DISEASE
     Dosage: 262.5 MG, 3 TABLETS DAILY
     Route: 048
     Dates: start: 20070601
  4. PROPRANOLOL [Concomitant]
     Indication: TREMOR
  5. AKINETON [Concomitant]
     Dosage: UNK

REACTIONS (3)
  - GASTRITIS [None]
  - MYOCARDIAL INFARCTION [None]
  - ABDOMINAL PAIN [None]
